FAERS Safety Report 8814392 (Version 1)
Quarter: 2012Q4

REPORT INFORMATION
  Report Type: 
  Country: CH (occurrence: CH)
  Receive Date: 20120928
  Receipt Date: 20120928
  Transmission Date: 20130627
  Serious: Yes (Life-Threatening)
  Sender: FDA-Public Use
  Company Number: CH-PFIZER INC-2012237391

PATIENT
  Age: 38 Year
  Sex: Male

DRUGS (6)
  1. EFEXOR ER [Suspect]
     Dosage: 150 mg, 1x/day
     Route: 048
     Dates: start: 20100930
  2. METHADONE [Suspect]
     Indication: DRUG DEPENDENCE
     Dosage: 150 mg, 1x/day
     Route: 048
     Dates: end: 20101118
  3. METHADONE [Suspect]
     Indication: MENTAL DISORDER
     Dosage: 160 mg, 1x/day
     Route: 048
     Dates: start: 20101119
  4. TRUXAL [Suspect]
     Dosage: 100 mg, 1x/day
     Route: 048
     Dates: start: 20101109
  5. SEROQUEL [Suspect]
     Dosage: 50 mg, 1x/day
     Route: 048
     Dates: end: 20101109
  6. DEMETRIN [Concomitant]
     Dosage: 50 mg, 1x/day
     Route: 048
     Dates: start: 20100930

REACTIONS (2)
  - Electrocardiogram QT prolonged [Unknown]
  - Drug level above therapeutic [Unknown]
